FAERS Safety Report 21726889 (Version 2)
Quarter: 2023Q1

REPORT INFORMATION
  Report Type: Report from Study
  Country: CN (occurrence: CN)
  Receive Date: 20221214
  Receipt Date: 20230215
  Transmission Date: 20230417
  Serious: Yes (Hospitalization)
  Sender: FDA-Public Use
  Company Number: CN-JNJFOC-20221209990

PATIENT
  Age: 76 Year
  Sex: Male
  Weight: 67 kg

DRUGS (4)
  1. ERDAFITINIB [Suspect]
     Active Substance: ERDAFITINIB
     Indication: Transitional cell carcinoma
     Dosage: MEDICAL KIT NO: 153794, 153867,188497
     Route: 048
     Dates: start: 20220329, end: 20221107
  2. ERDAFITINIB [Suspect]
     Active Substance: ERDAFITINIB
     Dosage: MEDICAL KIT NO: 153794,188497, MOST RECENT DOSE ADMINISTERED WAS ON 07-NOV-2022
     Route: 048
     Dates: start: 20220329
  3. SALICYLIC ACID [Concomitant]
     Active Substance: SALICYLIC ACID
     Indication: Dry skin
     Dates: start: 20220516, end: 20221202
  4. FUROSEMIDE [Concomitant]
     Active Substance: FUROSEMIDE
     Indication: Renal failure
     Dates: start: 20221118, end: 20221118

REACTIONS (3)
  - Mouth ulceration [Recovered/Resolved]
  - Renal failure [Not Recovered/Not Resolved]
  - Anaemia [Not Recovered/Not Resolved]

NARRATIVE: CASE EVENT DATE: 20221117
